FAERS Safety Report 6152315-7 (Version None)
Quarter: 2009Q2

REPORT INFORMATION
  Report Type: 
  Country: None (occurrence: None)
  Receive Date: 20090413
  Receipt Date: 20071130
  Transmission Date: 20091009
  Serious: Yes (Death, Other)
  Sender: FDA-Public Use
  Company Number: US-ASTRAZENECA-2006UW21582

PATIENT
  Age: 21995 Day
  Sex: Male

DRUGS (2)
  1. SEROQUEL [Suspect]
     Indication: BIPOLAR DISORDER
     Route: 048
     Dates: start: 20050812, end: 20060130
  2. SEROQUEL [Suspect]
     Indication: DEPRESSION
     Route: 048
     Dates: start: 20050812, end: 20060130

REACTIONS (5)
  - DEATH [None]
  - DIABETES MELLITUS [None]
  - METASTASIS [None]
  - PNEUMONIA [None]
  - PULMONARY EMBOLISM [None]
